FAERS Safety Report 14510226 (Version 5)
Quarter: 2023Q4

REPORT INFORMATION
  Report Type: Spontaneous
  Country: FR (occurrence: FR)
  Receive Date: 20180209
  Receipt Date: 20231005
  Transmission Date: 20240110
  Serious: Yes (Death, Hospitalization, Other)
  Sender: FDA-Public Use
  Company Number: FR-AUROBINDO-AUR-APL-2018-005556

PATIENT
  Age: 71 Year
  Sex: Male
  Weight: 113.4 kg

DRUGS (53)
  1. PANTOPRAZOLE [Suspect]
     Active Substance: PANTOPRAZOLE
     Indication: Product used for unknown indication
     Dosage: ()
     Route: 042
     Dates: start: 20161225, end: 20170119
  2. ACETAMINOPHEN\TRAMADOL [Suspect]
     Active Substance: ACETAMINOPHEN\TRAMADOL
     Indication: Product used for unknown indication
     Dosage: 8 DF, QD
     Route: 048
     Dates: start: 20161201, end: 20170119
  3. LINEZOLID [Suspect]
     Active Substance: LINEZOLID
     Indication: Skin infection
     Dosage: 600 MG, BID
     Route: 048
     Dates: start: 20161222, end: 20170110
  4. RIFAMPIN [Suspect]
     Active Substance: RIFAMPIN
     Indication: Product used for unknown indication
     Dosage: ()
     Route: 065
  5. PIPERACILLIN AND TAZOBACTAM [Suspect]
     Active Substance: PIPERACILLIN SODIUM\TAZOBACTAM SODIUM
     Indication: Skin infection
     Dosage: 3 DF, QD ( 1 DF TID)
     Route: 042
     Dates: start: 20161204, end: 20170130
  6. METOCLOPRAMIDE HYDROCHLORIDE [Suspect]
     Active Substance: METOCLOPRAMIDE HYDROCHLORIDE
     Indication: Product used for unknown indication
     Dosage: 30 MG, QD
     Route: 048
  7. PRIMPERAN [Suspect]
     Active Substance: METOCLOPRAMIDE HYDROCHLORIDE
     Indication: Product used for unknown indication
     Dosage: 3 DF, TID ( 1 DF TID)
     Route: 048
     Dates: start: 20161224, end: 20170119
  8. PIPERACILLIN AND TAZOBACTAM [Suspect]
     Active Substance: PIPERACILLIN SODIUM\TAZOBACTAM SODIUM
     Indication: Skin infection
     Dosage: 3 DF, QD (1 DF, 3X/DAY)
     Route: 042
     Dates: start: 20161204, end: 20170130
  9. CUBICIN [Suspect]
     Active Substance: DAPTOMYCIN
     Indication: Product used for unknown indication
     Dosage: 800 MG, QD
     Route: 042
     Dates: start: 20170110, end: 20170201
  10. CUBICIN [Suspect]
     Active Substance: DAPTOMYCIN
     Dosage: 800 MG, QD
     Route: 042
  11. BUDESONIDE\FORMOTEROL FUMARATE [Suspect]
     Active Substance: BUDESONIDE\FORMOTEROL FUMARATE
     Indication: Product used for unknown indication
     Dosage: 1 DF, QD
     Route: 055
     Dates: start: 20161220, end: 20170119
  12. RIFADIN [Suspect]
     Active Substance: RIFAMPIN
     Indication: Product used for unknown indication
     Dosage: UNK ()
     Route: 065
  13. VANCOMYCIN HYDROCHLORIDE [Suspect]
     Active Substance: VANCOMYCIN HYDROCHLORIDE
     Indication: Product used for unknown indication
     Dosage: UNK ()
     Route: 065
  14. VANCOMYCIN HYDROCHLORIDE [Suspect]
     Active Substance: VANCOMYCIN HYDROCHLORIDE
     Dosage: ()
  15. VANCOMYCIN HYDROCHLORIDE [Suspect]
     Active Substance: VANCOMYCIN HYDROCHLORIDE
     Dosage: ()
     Route: 065
  16. VANCOMYCIN HYDROCHLORIDE [Suspect]
     Active Substance: VANCOMYCIN HYDROCHLORIDE
     Dosage: ()
     Route: 065
  17. QUESTRAN [Suspect]
     Active Substance: CHOLESTYRAMINE
     Indication: Product used for unknown indication
     Dosage: 1 DF, QD
     Route: 048
     Dates: start: 20161216, end: 20170119
  18. ULTRAVIST [Suspect]
     Active Substance: IOPROMIDE
     Indication: Chest scan
     Dosage: 370 MG, UNK
     Route: 042
     Dates: start: 20170116, end: 20170116
  19. ULTRAVIST [Suspect]
     Active Substance: IOPROMIDE
     Dosage: ()
  20. PIPERACILLIN [Suspect]
     Active Substance: PIPERACILLIN
     Indication: Skin infection
     Dosage: 1 DF, 3X/DAY
     Route: 042
     Dates: start: 20161204, end: 20170130
  21. NEFOPAM [Suspect]
     Active Substance: NEFOPAM
     Indication: Product used for unknown indication
     Dosage: ()
     Route: 042
     Dates: start: 20161202, end: 20170119
  22. RACECADOTRIL [Suspect]
     Active Substance: RACECADOTRIL
     Indication: Product used for unknown indication
     Dosage: 1 DF, TID
     Route: 048
     Dates: start: 20161209, end: 20170119
  23. INSULIN HUMAN [Concomitant]
     Active Substance: INSULIN HUMAN
     Indication: Product used for unknown indication
     Dosage: UNK ()
  24. INSULIN HUMAN [Concomitant]
     Active Substance: INSULIN HUMAN
     Dosage: ()
     Route: 065
  25. INSULIN HUMAN [Concomitant]
     Active Substance: INSULIN HUMAN
     Dosage: ()
     Route: 065
  26. INSULIN HUMAN [Concomitant]
     Active Substance: INSULIN HUMAN
     Dosage: ()
     Route: 065
  27. POLARAMINE [Concomitant]
     Active Substance: DEXCHLORPHENIRAMINE MALEATE
     Indication: Product used for unknown indication
     Dosage: UNK ()
     Route: 065
  28. POLARAMINE [Concomitant]
     Active Substance: DEXCHLORPHENIRAMINE MALEATE
     Dosage: ()
     Route: 065
  29. LANTUS [Concomitant]
     Active Substance: INSULIN GLARGINE
     Indication: Product used for unknown indication
     Dosage: UNK ()
     Route: 065
  30. LANTUS [Concomitant]
     Active Substance: INSULIN GLARGINE
     Dosage: ()
     Route: 065
  31. LANTUS [Concomitant]
     Active Substance: INSULIN GLARGINE
     Dosage: ()
     Route: 065
  32. LANTUS [Concomitant]
     Active Substance: INSULIN GLARGINE
     Dosage: ()
     Route: 065
  33. LOVENOX [Concomitant]
     Active Substance: ENOXAPARIN SODIUM
     Indication: Product used for unknown indication
     Dosage: UNK ()
     Route: 065
  34. LOVENOX [Concomitant]
     Active Substance: ENOXAPARIN SODIUM
     Dosage: ()
     Route: 065
  35. LOVENOX [Concomitant]
     Active Substance: ENOXAPARIN SODIUM
     Dosage: ()
     Route: 065
  36. LOVENOX [Concomitant]
     Active Substance: ENOXAPARIN SODIUM
     Dosage: ()
     Route: 065
     Dates: start: 20170114
  37. LOPERAMIDE [Concomitant]
     Active Substance: LOPERAMIDE
     Indication: Product used for unknown indication
     Dosage: UNK ()
  38. LOPERAMIDE [Concomitant]
     Active Substance: LOPERAMIDE
     Dosage: ()
     Route: 065
  39. LOPERAMIDE [Concomitant]
     Active Substance: LOPERAMIDE
     Dosage: ()
     Route: 065
  40. LOPERAMIDE [Concomitant]
     Active Substance: LOPERAMIDE
     Dosage: ()
     Route: 065
  41. KARDEGIC [Concomitant]
     Active Substance: ASPIRIN DL-LYSINE
     Indication: Product used for unknown indication
     Dosage: UNK ()
     Route: 065
  42. KARDEGIC [Concomitant]
     Active Substance: ASPIRIN DL-LYSINE
     Dosage: ()
     Route: 065
  43. KARDEGIC [Concomitant]
     Active Substance: ASPIRIN DL-LYSINE
     Dosage: ()
     Route: 065
  44. KARDEGIC [Concomitant]
     Active Substance: ASPIRIN DL-LYSINE
     Dosage: ()
     Route: 065
  45. FUROSEMIDE [Concomitant]
     Active Substance: FUROSEMIDE
     Indication: Product used for unknown indication
     Dosage: UNK ()
  46. FUROSEMIDE [Concomitant]
     Active Substance: FUROSEMIDE
     Dosage: ()
     Route: 065
  47. FUROSEMIDE [Concomitant]
     Active Substance: FUROSEMIDE
     Dosage: ()
     Route: 065
  48. FUROSEMIDE [Concomitant]
     Active Substance: FUROSEMIDE
     Dosage: ()
     Route: 065
  49. DUPHALAC                           /00163401/ [Concomitant]
     Indication: Product used for unknown indication
     Dosage: UNK ()
     Route: 065
  50. POTASSIUM CHLORIDE [Concomitant]
     Active Substance: POTASSIUM CHLORIDE
     Indication: Product used for unknown indication
     Dosage: UNK ()
     Route: 065
  51. POTASSIUM CHLORIDE [Concomitant]
     Active Substance: POTASSIUM CHLORIDE
     Dosage: ()
     Route: 065
  52. POTASSIUM CHLORIDE [Concomitant]
     Active Substance: POTASSIUM CHLORIDE
     Dosage: ()
     Route: 065
  53. POTASSIUM CHLORIDE [Concomitant]
     Active Substance: POTASSIUM CHLORIDE
     Dosage: ()
     Route: 065

REACTIONS (18)
  - Death [Fatal]
  - Pulmonary interstitial emphysema syndrome [Fatal]
  - Glomerular filtration rate decreased [Fatal]
  - Rectal haemorrhage [Fatal]
  - Alveolar lung disease [Fatal]
  - Rash maculo-papular [Fatal]
  - Sepsis [Fatal]
  - Eosinophilic pneumonia [Fatal]
  - Acute kidney injury [Fatal]
  - Hyperammonaemia [Fatal]
  - Generalised oedema [Fatal]
  - Eczema [Fatal]
  - Dyspnoea [Fatal]
  - Restlessness [Fatal]
  - Hepatic encephalopathy [Fatal]
  - Thrombocytopenia [Fatal]
  - Diffuse alveolar damage [Fatal]
  - Eosinophilia [Fatal]

NARRATIVE: CASE EVENT DATE: 20161227
